FAERS Safety Report 6805334-9 (Version None)
Quarter: 2010Q2

REPORT INFORMATION
  Report Type: 
  Country: None (occurrence: None)
  Receive Date: 20100628
  Receipt Date: 20071024
  Transmission Date: 20101027
  Serious: No
  Sender: FDA-Public Use
  Company Number: US-PFIZER INC-2007091367

PATIENT
  Age: 50 Year
  Sex: Male

DRUGS (6)
  1. GEODON [Suspect]
     Indication: BIPOLAR DISORDER
     Dates: start: 20070101
  2. GEODON [Suspect]
     Indication: IMPULSE-CONTROL DISORDER
  3. PAXIL [Concomitant]
  4. LITHIUM [Concomitant]
  5. SEROQUEL [Concomitant]
  6. TOPAMAX [Concomitant]

REACTIONS (3)
  - ERECTILE DYSFUNCTION [None]
  - SLEEP APNOEA SYNDROME [None]
  - WEIGHT ABNORMAL [None]
